FAERS Safety Report 6261797-1 (Version None)
Quarter: 2009Q3

REPORT INFORMATION
  Report Type: 
  Country: None (occurrence: None)
  Receive Date: 20090709
  Receipt Date: 20090702
  Transmission Date: 20100115
  Serious: Yes (Death, Hospitalization)
  Sender: FDA-Public Use
  Company Number: ZA-PFIZER INC-2009205687

PATIENT
  Age: 78 Year

DRUGS (3)
  1. SUNITINIB MALATE [Suspect]
     Indication: HEPATIC NEOPLASM MALIGNANT
     Dosage: 37.5 MG, 1X/DAY
     Route: 048
     Dates: start: 20090408, end: 20090424
  2. ALDOMET [Concomitant]
     Indication: HYPERTENSION
     Dosage: 250 MG, UNK
     Route: 048
     Dates: start: 19890101, end: 20090430
  3. LASIX [Concomitant]
     Indication: HYPERTENSION
     Dosage: 25 MG, 1X/DAY
     Route: 048
     Dates: start: 19890101, end: 20090430

REACTIONS (4)
  - DEHYDRATION [None]
  - DIARRHOEA [None]
  - RESPIRATORY FAILURE [None]
  - SEPSIS [None]
